FAERS Safety Report 4461609-2 (Version None)
Quarter: 2004Q3

REPORT INFORMATION
  Report Type: 
  Country: None (occurrence: None)
  Receive Date: 20040927
  Receipt Date: 20040927
  Transmission Date: 20050211
  Serious: Yes (Death)
  Sender: FDA-Public Use
  Company Number: None

PATIENT
  Sex: Female

DRUGS (2)
  1. MORPHINE [Suspect]
     Indication: PAIN
     Dosage: 16MG/4HR
  2. MS CONTIN [Suspect]
     Indication: PAIN
     Dosage: 60 MG TID

REACTIONS (1)
  - CARDIAC ARREST [None]
